FAERS Safety Report 10540761 (Version 1)
Quarter: 2014Q4

REPORT INFORMATION
  Report Type: Spontaneous
  Country: SE (occurrence: SE)
  Receive Date: 20141024
  Receipt Date: 20141024
  Transmission Date: 20150529
  Serious: Yes (Other)
  Sender: FDA-Public Use
  Company Number: SE-SA-2014SA142083

PATIENT
  Age: 46 Year
  Sex: Female

DRUGS (3)
  1. ARAVA [Suspect]
     Active Substance: LEFLUNOMIDE
     Route: 048
     Dates: start: 201408, end: 20140929
  2. KLOROKINFOSFAT ^RECIP^ [Concomitant]
  3. SALAZOPYRIN [Concomitant]
     Active Substance: SULFASALAZINE

REACTIONS (3)
  - Gastritis [Recovered/Resolved]
  - Vomiting [Recovered/Resolved]
  - Faeces discoloured [Recovered/Resolved]

NARRATIVE: CASE EVENT DATE: 20140909
